FAERS Safety Report 6927853-7 (Version None)
Quarter: 2010Q3

REPORT INFORMATION
  Report Type: 
  Country: None (occurrence: None)
  Receive Date: 20100817
  Receipt Date: 20100805
  Transmission Date: 20110219
  Serious: Yes (Other)
  Sender: FDA-Public Use
  Company Number: US-PFIZER INC-2010099424

PATIENT
  Sex: Male

DRUGS (3)
  1. TRIAZOLAM [Suspect]
     Indication: ANXIETY
     Dosage: 0.25 MG, UNK
     Route: 048
     Dates: start: 20100805
  2. VICODIN [Concomitant]
     Indication: PAIN
     Dosage: UNK
  3. FLOMAX [Concomitant]
     Dosage: UNK

REACTIONS (3)
  - FATIGUE [None]
  - INCORRECT DOSE ADMINISTERED [None]
  - SEDATION [None]
